FAERS Safety Report 20898790 (Version 2)
Quarter: 2022Q2

REPORT INFORMATION
  Report Type: Spontaneous
  Country: DE (occurrence: DE)
  Receive Date: 20220601
  Receipt Date: 20220607
  Transmission Date: 20220721
  Serious: Yes (Other)
  Sender: FDA-Public Use
  Company Number: DE-CELLTRION INC.-2022DE008056

PATIENT

DRUGS (1)
  1. RITUXIMAB [Suspect]
     Active Substance: RITUXIMAB
     Indication: Ocular lymphoma
     Dosage: 1 GM IN 0.1 ML
     Route: 050

REACTIONS (6)
  - Eye haemorrhage [Recovered/Resolved]
  - Cataract [Recovered/Resolved]
  - Retinal detachment [Recovered/Resolved]
  - Off label use [Unknown]
  - Off label use [Unknown]
  - Intraocular pressure increased [Recovered/Resolved]
